APPROVED DRUG PRODUCT: BLEOMYCIN SULFATE
Active Ingredient: BLEOMYCIN SULFATE
Strength: EQ 30 UNITS BASE/VIAL
Dosage Form/Route: INJECTABLE;INJECTION
Application: A065042 | Product #001 | TE Code: AP
Applicant: HIKMA PHARMACEUTICALS USA INC
Approved: Oct 17, 2001 | RLD: No | RS: No | Type: RX